FAERS Safety Report 14673591 (Version 1)
Quarter: 2018Q1

REPORT INFORMATION
  Report Type: Spontaneous
  Country: US (occurrence: US)
  Receive Date: 20180323
  Receipt Date: 20180323
  Transmission Date: 20180509
  Serious: No
  Sender: FDA-Public Use
  Company Number: US-EISAI MEDICAL RESEARCH-EC-2018-037019

PATIENT
  Sex: Female

DRUGS (1)
  1. PILOCARPINE. [Suspect]
     Active Substance: PILOCARPINE
     Indication: SJOGREN^S SYNDROME
     Dosage: UNKNOWN

REACTIONS (3)
  - Dehydration [Unknown]
  - Muscle spasms [Unknown]
  - Hyperhidrosis [Unknown]
